FAERS Safety Report 16798981 (Version 2)
Quarter: 2019Q3

REPORT INFORMATION
  Report Type: Spontaneous
  Country: US (occurrence: US)
  Receive Date: 20190912
  Receipt Date: 20190916
  Transmission Date: 20191005
  Serious: No
  Sender: FDA-Public Use
  Company Number: US-PFIZER INC-2016604351

PATIENT
  Age: 58 Year
  Sex: Female

DRUGS (18)
  1. NOVOLOG [Concomitant]
     Active Substance: INSULIN ASPART
     Dosage: UNK, 3X/DAY
  2. CLOTRIMAZOLE. [Concomitant]
     Active Substance: CLOTRIMAZOLE
     Dosage: UNK UNK, AS NEEDED [1 APPLICATION TO AFFECTED AREA EXTERNALLY PRN]
     Dates: start: 20141216
  3. LYRICA [Suspect]
     Active Substance: PREGABALIN
     Dosage: 150 MG, 2X/DAY
     Route: 048
  4. LYRICA [Suspect]
     Active Substance: PREGABALIN
     Dosage: UNK
  5. COLACE [Concomitant]
     Active Substance: DOCUSATE SODIUM
     Dosage: 100 MG, AS NEEDED [1 CAPSULE AS NEEDED ORALLY TWICE A DAY ]
     Route: 048
  6. ZYRTEC [Concomitant]
     Active Substance: CETIRIZINE HYDROCHLORIDE
     Dosage: 10 MG, AS NEEDED [1 TABLET AS NEEDED ORALLY ONCE A DAY]
     Route: 048
     Dates: start: 20160209
  7. PROZAC [Concomitant]
     Active Substance: FLUOXETINE HYDROCHLORIDE
     Dosage: 20 MG, 1X/DAY [1 CAPSULE IN THE MORNING ORALLY ONCE A DAY]
     Route: 048
     Dates: start: 20160301
  8. HYDROCHLOROTHIAZIDE. [Concomitant]
     Active Substance: HYDROCHLOROTHIAZIDE
     Dosage: 25 MG, 1X/DAY [1 TABLET PO DAY]
     Route: 048
  9. XANAX [Concomitant]
     Active Substance: ALPRAZOLAM
     Dosage: 0.25 MG, AS NEEDED [1 TABLET ORALLY TWICE A DAY NEEDED]
     Route: 048
  10. LYRICA [Suspect]
     Active Substance: PREGABALIN
     Indication: DIABETIC NEUROPATHY
     Dosage: 150 MG, 1X/DAY
     Route: 048
  11. MELOXICAM. [Concomitant]
     Active Substance: MELOXICAM
     Dosage: 15 MG, 1X/DAY [1 TABLET ORALLY ONCE A DAY]
     Route: 048
     Dates: start: 20160223
  12. OMEPRAZOLE. [Concomitant]
     Active Substance: OMEPRAZOLE
     Dosage: 40 MG, 1X/DAY [1 CAPSULE ORALLY ONCE A DAY]
     Route: 048
     Dates: start: 20160218
  13. FLUTICASONE PROPIONATE. [Concomitant]
     Active Substance: FLUTICASONE PROPIONATE
     Dosage: 2 DF, 1X/DAY (2SPRAY IN EACH NOSTRIL INTRANASALLY ONCE A DAY)
     Route: 045
     Dates: start: 20081001
  14. ZOFRAN [Concomitant]
     Active Substance: ONDANSETRON HYDROCHLORIDE
     Dosage: 4 MG, 3X/DAY [1 TABLET ON THE TONGUE AND ALLOW TO DISSOLVE ORALLY EVERY 8 HRS]
     Route: 048
     Dates: start: 20150806
  15. ATORVASTATIN CALCIUM. [Concomitant]
     Active Substance: ATORVASTATIN CALCIUM
     Dosage: 10 MG, 1X/DAY [1 TABLET ORALLY ONCE A DAY]
     Route: 048
  16. VITAMIN D [Concomitant]
     Active Substance: VITAMIN D NOS
     Dosage: 1000 IU, 1X/DAY [1 TABLET ORALLY ONCE A DAY ]
     Route: 048
  17. VALIUM [Concomitant]
     Active Substance: DIAZEPAM
     Dosage: 2 MG, 3X/DAY [1 TABLET ORALLY THREE TIMES A DAY]
     Route: 048
  18. LOSARTAN POTASSIUM. [Concomitant]
     Active Substance: LOSARTAN POTASSIUM
     Dosage: 100 MG, 1X/DAY [1 TABLET ORALLY ONCE A DAY]
     Route: 048

REACTIONS (3)
  - Withdrawal syndrome [Unknown]
  - Balance disorder [Unknown]
  - Feeling jittery [Unknown]
